FAERS Safety Report 7145327-8 (Version None)
Quarter: 2010Q4

REPORT INFORMATION
  Report Type: 
  Country: None (occurrence: None)
  Receive Date: 20101208
  Receipt Date: 20101129
  Transmission Date: 20110411
  Serious: Yes (Other)
  Sender: FDA-Public Use
  Company Number: DE-US-EMD SERONO, INC.-7029625

PATIENT
  Sex: Female

DRUGS (2)
  1. REBIF [Suspect]
     Indication: MULTIPLE SCLEROSIS
     Dates: end: 20090101
  2. REBIF [Suspect]
     Dates: start: 20100101

REACTIONS (6)
  - FEELING HOT [None]
  - HYPERTENSION [None]
  - INTERVERTEBRAL DISCITIS [None]
  - MALAISE [None]
  - PAIN [None]
  - VERTIGO [None]
